FAERS Safety Report 10437606 (Version 1)
Quarter: 2014Q3

REPORT INFORMATION
  Report Type: Spontaneous
  Country: NL (occurrence: NL)
  Receive Date: 20140908
  Receipt Date: 20140908
  Transmission Date: 20150326
  Serious: Yes (Hospitalization)
  Sender: FDA-Public Use
  Company Number: NL-MYLANLABS-2014M1003441

PATIENT

DRUGS (2)
  1. CLOMIPRAMINE [Suspect]
     Active Substance: CLOMIPRAMINE
     Dosage: UNK
     Route: 064
  2. ALDOMET [Concomitant]
     Active Substance: METHYLDOPA
     Dosage: UNK
     Route: 064

REACTIONS (9)
  - Drug withdrawal syndrome [Recovered/Resolved]
  - Convulsion [Recovered/Resolved]
  - Foetal exposure during pregnancy [Recovered/Resolved]
  - Muscle tone disorder [Recovered/Resolved]
  - Dyspnoea [Recovered/Resolved]
  - Akathisia [Recovered/Resolved]
  - Respiratory acidosis [Recovered/Resolved]
  - Strabismus [Recovered/Resolved]
  - Feeding disorder [Recovered/Resolved]
